FAERS Safety Report 7874928-4 (Version None)
Quarter: 2011Q4

REPORT INFORMATION
  Report Type: 
  Country: None (occurrence: None)
  Receive Date: 20111031
  Receipt Date: 20111023
  Transmission Date: 20120403
  Serious: No
  Sender: FDA-Public Use
  Company Number: US-B.I. PHARMACEUTICALS,INC./RIDGEFIELD-2011-BP-24776BP

PATIENT
  Sex: Male

DRUGS (3)
  1. PRADAXA [Suspect]
     Indication: ATRIAL FIBRILLATION
     Dosage: 300 MG
     Route: 048
     Dates: start: 20110701
  2. NEBIVOLOL HCL [Suspect]
     Indication: HEART RATE DECREASED
     Route: 048
     Dates: start: 20110101, end: 20110901
  3. MULTI-VITAMINS [Concomitant]
     Route: 048

REACTIONS (5)
  - EPHELIDES [None]
  - SKIN DISCOLOURATION [None]
  - ERYTHEMA [None]
  - HAEMORRHOIDAL HAEMORRHAGE [None]
  - HEART RATE DECREASED [None]
